FAERS Safety Report 7629471-4 (Version None)
Quarter: 2011Q3

REPORT INFORMATION
  Report Type: 
  Country: None (occurrence: None)
  Receive Date: 20110722
  Receipt Date: 20110715
  Transmission Date: 20111222
  Serious: No
  Sender: FDA-Public Use
  Company Number: US-BAYER-2011-062122

PATIENT
  Sex: Female

DRUGS (2)
  1. YAZ [Suspect]
  2. DROSPIRENONE AND ETHINYL ESTRADIOL [Suspect]
     Dosage: UNK
     Dates: end: 20110713

REACTIONS (5)
  - MYALGIA [None]
  - DIZZINESS [None]
  - TENSION [None]
  - HEADACHE [None]
  - MOOD ALTERED [None]
